FAERS Safety Report 26064023 (Version 2)
Quarter: 2025Q4

REPORT INFORMATION
  Report Type: Spontaneous
  Country: EU (occurrence: EU)
  Receive Date: 20251119
  Receipt Date: 20251217
  Transmission Date: 20260117
  Serious: Yes (Other)
  Sender: MYLAN
  Company Number: EU-MYLANLABS-2025M1097258

PATIENT
  Age: 70 Year
  Sex: Male

DRUGS (16)
  1. DOXORUBICIN [Suspect]
     Active Substance: DOXORUBICIN
     Indication: Cutaneous T-cell lymphoma
     Dosage: UNK, 6 CYCLES, A PART OF CHOP REGIMEN
  2. DOXORUBICIN [Suspect]
     Active Substance: DOXORUBICIN
     Dosage: UNK, 6 CYCLES, A PART OF CHOP REGIMEN
     Route: 065
  3. DOXORUBICIN [Suspect]
     Active Substance: DOXORUBICIN
     Dosage: UNK, 6 CYCLES, A PART OF CHOP REGIMEN
     Route: 065
  4. DOXORUBICIN [Suspect]
     Active Substance: DOXORUBICIN
     Dosage: UNK, 6 CYCLES, A PART OF CHOP REGIMEN
  5. PREDNISONE [Suspect]
     Active Substance: PREDNISONE
     Indication: Cutaneous T-cell lymphoma
     Dosage: UNK, 6 CYCLES, A PART OF CHOP REGIMEN
  6. PREDNISONE [Suspect]
     Active Substance: PREDNISONE
     Dosage: UNK, 6 CYCLES, A PART OF CHOP REGIMEN
     Route: 065
  7. PREDNISONE [Suspect]
     Active Substance: PREDNISONE
     Dosage: UNK, 6 CYCLES, A PART OF CHOP REGIMEN
     Route: 065
  8. PREDNISONE [Suspect]
     Active Substance: PREDNISONE
     Dosage: UNK, 6 CYCLES, A PART OF CHOP REGIMEN
  9. CYCLOPHOSPHAMIDE [Suspect]
     Active Substance: CYCLOPHOSPHAMIDE
     Indication: Cutaneous T-cell lymphoma
     Dosage: UNK, 6 CYCLES, A PART OF CHOP REGIMEN
  10. CYCLOPHOSPHAMIDE [Suspect]
     Active Substance: CYCLOPHOSPHAMIDE
     Dosage: UNK, 6 CYCLES, A PART OF CHOP REGIMEN
     Route: 065
  11. CYCLOPHOSPHAMIDE [Suspect]
     Active Substance: CYCLOPHOSPHAMIDE
     Dosage: UNK, 6 CYCLES, A PART OF CHOP REGIMEN
     Route: 065
  12. CYCLOPHOSPHAMIDE [Suspect]
     Active Substance: CYCLOPHOSPHAMIDE
     Dosage: UNK, 6 CYCLES, A PART OF CHOP REGIMEN
  13. ONCOVIN [Suspect]
     Active Substance: VINCRISTINE SULFATE
     Indication: Cutaneous T-cell lymphoma
     Dosage: UNK, 6 CYCLES, A PART OF CHOP REGIMEN
  14. ONCOVIN [Suspect]
     Active Substance: VINCRISTINE SULFATE
     Dosage: UNK, 6 CYCLES, A PART OF CHOP REGIMEN
     Route: 065
  15. ONCOVIN [Suspect]
     Active Substance: VINCRISTINE SULFATE
     Dosage: UNK, 6 CYCLES, A PART OF CHOP REGIMEN
     Route: 065
  16. ONCOVIN [Suspect]
     Active Substance: VINCRISTINE SULFATE
     Dosage: UNK, 6 CYCLES, A PART OF CHOP REGIMEN

REACTIONS (2)
  - Drug ineffective [Unknown]
  - Disease progression [Unknown]
